FAERS Safety Report 21171028 (Version 1)
Quarter: 2022Q3

REPORT INFORMATION
  Report Type: Spontaneous
  Country: US (occurrence: US)
  Receive Date: 20220804
  Receipt Date: 20220804
  Transmission Date: 20221026
  Serious: Yes (Other)
  Sender: FDA-Public Use
  Company Number: US-STRIDES ARCOLAB LIMITED-2022SP009193

PATIENT
  Age: 30 Year
  Sex: Female

DRUGS (16)
  1. FLUOXETINE [Suspect]
     Active Substance: FLUOXETINE HYDROCHLORIDE
     Indication: Narcolepsy
     Dosage: UNK
     Route: 065
  2. URSODIOL [Suspect]
     Active Substance: URSODIOL
     Indication: Cholestasis
     Dosage: 300 MILLIGRAM, BID
     Route: 065
  3. METHYLPHENIDATE [Suspect]
     Active Substance: METHYLPHENIDATE
     Indication: Narcolepsy
     Dosage: UNK
     Route: 065
  4. METHYLPHENIDATE [Suspect]
     Active Substance: METHYLPHENIDATE
     Dosage: 54 MILLIGRAM, (CONTROLLED RELEASE)
     Route: 065
  5. METHYLPHENIDATE [Suspect]
     Active Substance: METHYLPHENIDATE
     Dosage: 20 MILLIGRAM
     Route: 065
  6. METHYLPHENIDATE [Suspect]
     Active Substance: METHYLPHENIDATE
     Dosage: 36 MILLIGRAM,EACH MORNING (CONTROLLED RELEASE)
     Route: 065
  7. METHYLPHENIDATE [Suspect]
     Active Substance: METHYLPHENIDATE
     Dosage: 5 MILLIGRAM, BID
     Route: 065
  8. METHYLPHENIDATE [Suspect]
     Active Substance: METHYLPHENIDATE
     Dosage: 10-15MILLIGRAM/DAY
     Route: 065
  9. METHYLPHENIDATE [Suspect]
     Active Substance: METHYLPHENIDATE
     Dosage: 10 MILLIGRAM, TID
     Route: 065
  10. METHYLPHENIDATE [Suspect]
     Active Substance: METHYLPHENIDATE
     Dosage: 10 MILLIGRAM, QID
     Route: 065
  11. METHYLPHENIDATE [Suspect]
     Active Substance: METHYLPHENIDATE
     Dosage: 36 MILLIGRAM,EACH MORNING (CONTROLLED RELEASE)
     Route: 065
  12. ARMODAFINIL [Suspect]
     Active Substance: ARMODAFINIL
     Indication: Narcolepsy
     Dosage: UNK
     Route: 065
  13. SERTRALINE [Suspect]
     Active Substance: SERTRALINE HYDROCHLORIDE
     Indication: Cataplexy
     Dosage: UNK
     Route: 065
  14. SERTRALINE [Suspect]
     Active Substance: SERTRALINE HYDROCHLORIDE
     Dosage: 100 MILLIGRAM
     Route: 065
  15. VITAMIN B6 [Suspect]
     Active Substance: PYRIDOXINE HYDROCHLORIDE
     Indication: Vitamin supplementation
     Dosage: UNK
     Route: 065
  16. DOXYLAMINE [Suspect]
     Active Substance: DOXYLAMINE
     Indication: Insomnia
     Dosage: 100 MILLIGRAM
     Route: 065

REACTIONS (4)
  - Drug ineffective for unapproved indication [Unknown]
  - Maternal exposure during pregnancy [Unknown]
  - Maternal exposure during breast feeding [Unknown]
  - Off label use [Unknown]
